FAERS Safety Report 4743794-8 (Version None)
Quarter: 2005Q3

REPORT INFORMATION
  Report Type: 
  Country: None (occurrence: None)
  Receive Date: 20050812
  Receipt Date: 20050718
  Transmission Date: 20060218
  Serious: Yes (Other)
  Sender: FDA-Public Use
  Company Number: US-MERCK-0507USA02732

PATIENT
  Age: 29 Year
  Sex: Female

DRUGS (3)
  1. PROPECIA [Suspect]
     Indication: ALOPECIA
     Route: 048
     Dates: start: 20050610, end: 20050627
  2. YASMIN [Concomitant]
     Route: 065
     Dates: start: 20050610, end: 20050627
  3. VITAMINS (UNSPECIFIED) [Concomitant]
     Route: 065

REACTIONS (4)
  - ABDOMINAL DISTENSION [None]
  - ABORTION INDUCED [None]
  - DRUG ADMINISTRATION ERROR [None]
  - DRUG EXPOSURE DURING PREGNANCY [None]
